FAERS Safety Report 15182730 (Version 1)
Quarter: 2018Q3

REPORT INFORMATION
  Report Type: Spontaneous
  Country: US (occurrence: US)
  Receive Date: 20180625
  Receipt Date: 20180625
  Transmission Date: 20181010
  Serious: Yes (Other)
  Sender: FDA-Public Use
  Company Number: None

PATIENT
  Age: 29 Year
  Sex: Female
  Weight: 67.5 kg

DRUGS (10)
  1. SPRYCEL [Suspect]
     Active Substance: DASATINIB
     Indication: ACUTE MYELOID LEUKAEMIA
     Route: 048
     Dates: start: 20180525, end: 20180622
  2. SIROLIMUS. [Concomitant]
     Active Substance: SIROLIMUS
  3. ACYCLOVIR. [Concomitant]
     Active Substance: ACYCLOVIR
  4. BUDESONIDE. [Concomitant]
     Active Substance: BUDESONIDE
  5. VENTOLIN [Concomitant]
     Active Substance: ALBUTEROL SULFATE
  6. LEXAPRO [Concomitant]
     Active Substance: ESCITALOPRAM OXALATE
  7. URSODIOL. [Concomitant]
     Active Substance: URSODIOL
  8. MEPRON [Concomitant]
     Active Substance: ATOVAQUONE
  9. POTASSIUM [Concomitant]
     Active Substance: POTASSIUM
  10. ZERIT [Concomitant]
     Active Substance: STAVUDINE

REACTIONS (1)
  - Pancytopenia [None]
